FAERS Safety Report 15528353 (Version 2)
Quarter: 2025Q3

REPORT INFORMATION
  Report Type: Spontaneous
  Country: EU (occurrence: EU)
  Receive Date: 20181020
  Receipt Date: 20250709
  Transmission Date: 20251020
  Serious: Yes (Life-Threatening, Hospitalization, Disabling, Other)
  Sender: AUROBINDO
  Company Number: EU-AUROBINDO-AUR-APL-2018-051060

PATIENT
  Age: 5 Year
  Sex: Female
  Weight: 16 kg

DRUGS (3)
  1. ACETAMINOPHEN [Suspect]
     Active Substance: ACETAMINOPHEN
     Indication: Pyrexia
     Route: 048
     Dates: start: 201504, end: 201505
  2. IBUPROFEN [Suspect]
     Active Substance: IBUPROFEN
     Indication: Tonsillitis streptococcal
     Route: 048
     Dates: start: 20150407, end: 20150413
  3. PENICILLIN G SODIUM [Suspect]
     Active Substance: PENICILLIN G SODIUM
     Indication: Pharyngotonsillitis
     Dosage: 250 MILLIGRAM, TWO TIMES A DAY
     Route: 048
     Dates: start: 20150407, end: 20150417

REACTIONS (5)
  - Toxic epidermal necrolysis [Recovered/Resolved with Sequelae]
  - Corneal disorder [Recovered/Resolved with Sequelae]
  - Eyelid oedema [Unknown]
  - Lip oedema [Unknown]
  - Drug ineffective [Unknown]

NARRATIVE: CASE EVENT DATE: 20150502
